FAERS Safety Report 4695591-X (Version None)
Quarter: 2005Q2

REPORT INFORMATION
  Report Type: 
  Country: None (occurrence: None)
  Receive Date: 20050524
  Receipt Date: 20050512
  Transmission Date: 20051028
  Serious: Yes (Hospitalization)
  Sender: FDA-Public Use
  Company Number: 2005UW07442

PATIENT
  Age: 75 Year
  Sex: Female

DRUGS (7)
  1. CRESTOR [Suspect]
     Route: 048
     Dates: start: 20050409, end: 20050401
  2. CRESTOR [Suspect]
     Route: 048
     Dates: start: 20050414
  3. ALDACTONE [Concomitant]
  4. POTASSIUM CHLORIDE [Concomitant]
  5. LASIX [Concomitant]
  6. IBUPROFEN [Concomitant]
  7. MULTI-VITAMINS [Concomitant]

REACTIONS (2)
  - RENAL FAILURE [None]
  - RHABDOMYOLYSIS [None]
